FAERS Safety Report 6556969-2 (Version None)
Quarter: 2010Q1

REPORT INFORMATION
  Report Type: 
  Country: None (occurrence: None)
  Receive Date: 20100128
  Receipt Date: 20100126
  Transmission Date: 20100710
  Serious: Yes (Hospitalization)
  Sender: FDA-Public Use
  Company Number: US-GILEAD-2009-0026168

PATIENT
  Sex: Female
  Weight: 42.676 kg

DRUGS (11)
  1. LETAIRIS [Suspect]
     Indication: PULMONARY ARTERIAL HYPERTENSION
     Route: 048
     Dates: start: 20080507, end: 20090619
  2. PROTONIX [Concomitant]
  3. PREDNISONE [Concomitant]
  4. PROCARDIA XL [Concomitant]
  5. TRAZODONE [Concomitant]
  6. CITALOPRAM [Concomitant]
  7. COLCHICINE [Concomitant]
  8. FLUOXETINE [Concomitant]
  9. COLACE [Concomitant]
  10. LORTADINE [Concomitant]
  11. OXYGEN [Concomitant]

REACTIONS (2)
  - ASCITES [None]
  - HEPATIC FIBROSIS [None]
